FAERS Safety Report 8842753 (Version 3)
Quarter: 2012Q4

REPORT INFORMATION
  Report Type: 
  Country: US (occurrence: US)
  Receive Date: 20121016
  Receipt Date: 20121219
  Transmission Date: 20130627
  Serious: Yes (Other)
  Sender: FDA-Public Use
  Company Number: US-CELGENEUS-163-21880-12033053

PATIENT
  Sex: Female

DRUGS (9)
  1. REVLIMID [Suspect]
     Indication: MYELODYSPLASTIC SYNDROME
     Dosage: 10 Milligram
     Route: 048
     Dates: start: 201202
  2. REVLIMID [Suspect]
     Dosage: 10 Milligram
     Route: 048
     Dates: start: 201204
  3. LIPITOR [Concomitant]
     Indication: CHOLESTEROL HIGH
     Dosage: 10 Milligram
     Route: 065
  4. ZOLOFT [Concomitant]
     Indication: DEPRESSION
     Dosage: 20 Milligram/Milliliters
     Route: 065
  5. METFORMIN [Concomitant]
     Indication: DIABETES
     Dosage: 1000 Milligram
     Route: 065
  6. GLIPIZIDE [Concomitant]
     Indication: DIABETES
     Dosage: 5 Milligram
     Route: 065
  7. LISINOPRIL [Concomitant]
     Indication: HYPERTENSION AGGRAVATED
     Dosage: 10/12.5
     Route: 065
  8. AVANDAMET [Concomitant]
     Indication: DIABETES
     Dosage: 4-1000
     Route: 065
  9. TRICOR [Concomitant]
     Indication: BLOOD CHOLESTEROL INCREASED
     Dosage: 145 Milligram
     Route: 065

REACTIONS (2)
  - Arthritis [Recovering/Resolving]
  - Muscular weakness [Recovered/Resolved]
